FAERS Safety Report 20975200 (Version 1)
Quarter: 2022Q2

REPORT INFORMATION
  Report Type: Spontaneous
  Country: ES (occurrence: ES)
  Receive Date: 20220617
  Receipt Date: 20220617
  Transmission Date: 20220721
  Serious: Yes (Death, Other)
  Sender: FDA-Public Use
  Company Number: ES-MSNLABS-2022MSNLIT00690

PATIENT

DRUGS (4)
  1. CAPECITABINE [Suspect]
     Active Substance: CAPECITABINE
     Indication: Polycystic liver disease
     Route: 065
  2. ENALAPRIL [Concomitant]
     Active Substance: ENALAPRIL
     Indication: Product used for unknown indication
     Route: 065
  3. METFORMIN [Concomitant]
     Active Substance: METFORMIN HYDROCHLORIDE
     Indication: Product used for unknown indication
     Route: 065
  4. ASPIRIN [Concomitant]
     Active Substance: ASPIRIN
     Indication: Product used for unknown indication
     Route: 065

REACTIONS (3)
  - Neoplasm progression [Fatal]
  - Metastases to peritoneum [Fatal]
  - Hepatic cancer recurrent [Fatal]
